FAERS Safety Report 14558079 (Version 4)
Quarter: 2018Q4

REPORT INFORMATION
  Report Type: Report from Study
  Country: CA (occurrence: CA)
  Receive Date: 20180221
  Receipt Date: 20181107
  Transmission Date: 20190204
  Serious: Yes (Other)
  Sender: FDA-Public Use
  Company Number: PHHY2018CA026730

PATIENT
  Age: 36 Year
  Sex: Female

DRUGS (1)
  1. GILENYA [Suspect]
     Active Substance: FINGOLIMOD HYDROCHLORIDE
     Indication: PRODUCT USED FOR UNKNOWN INDICATION
     Dosage: UNK
     Route: 048
     Dates: start: 20180213

REACTIONS (9)
  - Electrocardiogram PR shortened [Unknown]
  - Headache [Recovered/Resolved]
  - Fatigue [Unknown]
  - Colitis ulcerative [Unknown]
  - Middle insomnia [Unknown]
  - Palpitations [Unknown]
  - Musculoskeletal stiffness [Unknown]
  - Eye pain [Recovered/Resolved]
  - Nasopharyngitis [Unknown]

NARRATIVE: CASE EVENT DATE: 20180213
